FAERS Safety Report 5133582-5 (Version None)
Quarter: 2006Q4

REPORT INFORMATION
  Report Type: 
  Country: None (occurrence: None)
  Receive Date: 20061024
  Receipt Date: 20050606
  Transmission Date: 20070319
  Serious: Yes (Hospitalization)
  Sender: FDA-Public Use
  Company Number: US-ROCHE-406945

PATIENT
  Age: 13 Year
  Sex: Male
  Weight: 72.6 kg

DRUGS (1)
  1. ACCUTANE [Suspect]
     Indication: ACNE
     Route: 048
     Dates: end: 19990417

REACTIONS (31)
  - ACROPHOBIA [None]
  - ALCOHOLIC PSYCHOSIS [None]
  - ALCOHOLISM [None]
  - ANKLE FRACTURE [None]
  - BLOOD GLUCOSE DECREASED [None]
  - CLAVICLE FRACTURE [None]
  - CONTUSION [None]
  - DELUSION [None]
  - DEPRESSION [None]
  - DRUG ABUSER [None]
  - EXCORIATION [None]
  - GASTROOESOPHAGEAL REFLUX DISEASE [None]
  - HAEMATOCRIT DECREASED [None]
  - HAEMOGLOBIN DECREASED [None]
  - JOINT DISLOCATION [None]
  - LACERATION [None]
  - MAJOR DEPRESSION [None]
  - OEDEMA [None]
  - PHOBIA [None]
  - PLATELET COUNT DECREASED [None]
  - PNEUMOMEDIASTINUM [None]
  - PNEUMONIA [None]
  - POLYTRAUMATISM [None]
  - RED BLOOD CELL COUNT DECREASED [None]
  - RIB FRACTURE [None]
  - SCHIZOID PERSONALITY DISORDER [None]
  - SCHIZOPHRENIA [None]
  - SUICIDAL IDEATION [None]
  - SUICIDE ATTEMPT [None]
  - THERMAL BURN [None]
  - TOOTH INJURY [None]
